FAERS Safety Report 7591020-7 (Version None)
Quarter: 2011Q3

REPORT INFORMATION
  Report Type: 
  Country: None (occurrence: None)
  Receive Date: 20110705
  Receipt Date: 20110628
  Transmission Date: 20111222
  Serious: Yes (Life-Threatening, Hospitalization)
  Sender: FDA-Public Use
  Company Number: LT-ABBOTT-11P-234-0730775-00

PATIENT
  Age: 79 Year
  Sex: Male
  Weight: 79 kg

DRUGS (2)
  1. BETAXOLOL [Interacting]
     Indication: HYPERTENSION
     Route: 048
     Dates: start: 20100501
  2. TARKA [Suspect]
     Indication: HYPERTENSION
     Dosage: 1 IN 1 DAY, 180/2 MG
     Route: 048

REACTIONS (4)
  - ATRIOVENTRICULAR BLOCK FIRST DEGREE [None]
  - ARRHYTHMIA [None]
  - DRUG INTERACTION [None]
  - ATRIOVENTRICULAR BLOCK SECOND DEGREE [None]
